FAERS Safety Report 5625963-8 (Version None)
Quarter: 2008Q1

REPORT INFORMATION
  Report Type: 
  Country: None (occurrence: None)
  Receive Date: 20080213
  Receipt Date: 20080213
  Transmission Date: 20080703
  Serious: Yes (Other)
  Sender: FDA-Public Use
  Company Number: None

PATIENT
  Age: 27 Year
  Sex: Female
  Weight: 65.7716 kg

DRUGS (1)
  1. CHANTIX [Suspect]
     Indication: TOBACCO ABUSE
     Dosage: 1MG  2X DAILY  PO
     Route: 048
     Dates: start: 20080104, end: 20080123

REACTIONS (7)
  - ABNORMAL DREAMS [None]
  - AGGRESSION [None]
  - DEPRESSED MOOD [None]
  - DEPRESSIVE SYMPTOM [None]
  - INSOMNIA [None]
  - IRRITABILITY [None]
  - MORBID THOUGHTS [None]
